FAERS Safety Report 13302405 (Version 2)
Quarter: 2017Q1

REPORT INFORMATION
  Report Type: Spontaneous
  Country: US (occurrence: US)
  Receive Date: 20170307
  Receipt Date: 20170313
  Transmission Date: 20170428
  Serious: Yes (Hospitalization, Other)
  Sender: FDA-Public Use
  Company Number: US-PFIZER INC-2017096533

PATIENT
  Age: 51 Year
  Weight: 136 kg

DRUGS (3)
  1. LORAZEPAM. [Suspect]
     Active Substance: LORAZEPAM
     Dosage: UNK
  2. LYRICA [Suspect]
     Active Substance: PREGABALIN
     Indication: BACK PAIN
     Dosage: 100 MG, UNK
     Dates: start: 201610
  3. ZYDOL /00599202/ [Suspect]
     Active Substance: TRAMADOL HYDROCHLORIDE
     Dosage: UNK

REACTIONS (9)
  - Weight increased [Unknown]
  - Abasia [Unknown]
  - Back pain [Unknown]
  - Condition aggravated [Unknown]
  - Malaise [Unknown]
  - Blister [Unknown]
  - Activities of daily living impaired [Unknown]
  - Pain [Unknown]
  - Drug hypersensitivity [Unknown]
